FAERS Safety Report 8045530-9 (Version None)
Quarter: 2012Q1

REPORT INFORMATION
  Report Type: 
  Country: None (occurrence: None)
  Receive Date: 20120112
  Receipt Date: 20120112
  Transmission Date: 20120608
  Serious: Yes (Life-Threatening)
  Sender: FDA-Public Use
  Company Number: None

PATIENT
  Sex: Male
  Weight: 68.0396 kg

DRUGS (3)
  1. INVEGA SUSTENNA [Suspect]
     Dosage: 234 MG ; 156 MG; 117 MG ; 39 MG 5TH DC! IM
     Route: 030
     Dates: start: 20110830
  2. INVEGA SUSTENNA [Suspect]
     Dosage: 234 MG ; 156 MG; 117 MG ; 39 MG 5TH DC! IM
     Route: 030
     Dates: start: 20111016
  3. INVEGA SUSTENNA [Suspect]
     Dosage: 234 MG ; 156 MG; 117 MG ; 39 MG 5TH DC! IM
     Route: 030
     Dates: start: 20110916

REACTIONS (6)
  - MUSCLE RIGIDITY [None]
  - MUSCULOSKELETAL STIFFNESS [None]
  - MENTAL STATUS CHANGES [None]
  - ARRHYTHMIA [None]
  - DEFORMITY [None]
  - DYSKINESIA [None]
